FAERS Safety Report 9741529 (Version 1)
Quarter: 2013Q4

REPORT INFORMATION
  Report Type: Report from Study
  Country: CN (occurrence: CN)
  Receive Date: 20131210
  Receipt Date: 20131210
  Transmission Date: 20140711
  Serious: Yes (Hospitalization)
  Sender: FDA-Public Use
  Company Number: CN-ROCHE-1311326

PATIENT
  Age: 43 Year
  Sex: Female
  Weight: 70 kg

DRUGS (6)
  1. CELLCEPT [Suspect]
     Indication: LUPUS NEPHRITIS
     Route: 048
     Dates: start: 2009, end: 20130627
  2. CELLCEPT [Suspect]
     Route: 048
     Dates: start: 20130628, end: 201310
  3. CELLCEPT [Suspect]
     Route: 048
     Dates: start: 201310, end: 20131103
  4. CELLCEPT [Suspect]
     Route: 048
     Dates: start: 20131104
  5. PROGRAF [Concomitant]
     Indication: LUPUS NEPHRITIS
     Route: 048
     Dates: start: 2009
  6. MEDROL [Concomitant]
     Indication: LUPUS NEPHRITIS
     Route: 048
     Dates: start: 2009

REACTIONS (7)
  - Ascites [Recovered/Resolved]
  - Hepatic lesion [Not Recovered/Not Resolved]
  - Gamma-glutamyltransferase increased [Recovering/Resolving]
  - Platelet count decreased [Recovering/Resolving]
  - Haemoglobin decreased [Recovering/Resolving]
  - Gastrointestinal haemorrhage [Recovering/Resolving]
  - Blood blister [Recovering/Resolving]
